FAERS Safety Report 8992114 (Version 2)
Quarter: 2013Q3

REPORT INFORMATION
  Report Type: Spontaneous
  Country: GB (occurrence: GB)
  Receive Date: 20121231
  Receipt Date: 20130930
  Transmission Date: 20140515
  Serious: Yes (Disabling)
  Sender: FDA-Public Use
  Company Number: GB-009507513-1204USA04330

PATIENT
  Sex: Male
  Weight: 75 kg

DRUGS (2)
  1. ZOCOR [Suspect]
     Indication: HYPERLIPIDAEMIA
     Dosage: 40 MG, QD
     Route: 048
     Dates: start: 2010, end: 20111019
  2. MK-9378 [Concomitant]
     Dosage: UNK
     Route: 048
     Dates: start: 2010, end: 20111021

REACTIONS (2)
  - Lichenoid keratosis [Recovered/Resolved]
  - Drug eruption [Recovered/Resolved]
